FAERS Safety Report 15896580 (Version 1)
Quarter: 2019Q1

REPORT INFORMATION
  Report Type: Report from Study
  Country: DE (occurrence: DE)
  Receive Date: 20190131
  Receipt Date: 20190131
  Transmission Date: 20190417
  Serious: Yes (Hospitalization)
  Sender: FDA-Public Use
  Company Number: DE-TEVA-2019-DE-1006157

PATIENT
  Age: 46 Year
  Sex: Female

DRUGS (1)
  1. COPAXONE [Suspect]
     Active Substance: GLATIRAMER ACETATE
     Indication: MULTIPLE SCLEROSIS
     Dates: start: 20180319

REACTIONS (3)
  - Balance disorder [Unknown]
  - Vertigo [Unknown]
  - Meniere^s disease [Unknown]

NARRATIVE: CASE EVENT DATE: 201808
